FAERS Safety Report 5652097-9 (Version None)
Quarter: 2008Q1

REPORT INFORMATION
  Report Type: 
  Country: None (occurrence: None)
  Receive Date: 20080304
  Receipt Date: 20080224
  Transmission Date: 20080703
  Serious: Yes (Life-Threatening, Hospitalization)
  Sender: FDA-Public Use
  Company Number: E2020-02304-SPO-JP

PATIENT
  Age: 78 Year
  Sex: Male

DRUGS (7)
  1. ARICEPT [Suspect]
     Indication: DEMENTIA ALZHEIMER'S TYPE
     Dosage: 5 MG, 1 IN 1 D, ORAL
     Route: 048
     Dates: start: 20010101, end: 20080209
  2. SELBEX (TEPRENONE) [Concomitant]
  3. CEROCRAL (IFENPRODIL TARTRATE) [Concomitant]
  4. PANALDINE (TICLOPIDINE HYDROCHLORIDE) [Concomitant]
  5. PLETAL [Concomitant]
  6. ALINAMIN-F (FURSULTIAMINE) [Concomitant]
  7. BIOFERMIN (BIOFERMIN) [Concomitant]

REACTIONS (5)
  - CEREBRAL INFARCTION [None]
  - MUSCULAR WEAKNESS [None]
  - RENAL FAILURE ACUTE [None]
  - RHABDOMYOLYSIS [None]
  - THIRST [None]
